FAERS Safety Report 6610201-X (Version None)
Quarter: 2010Q1

REPORT INFORMATION
  Report Type: 
  Country: None (occurrence: None)
  Receive Date: 20100302
  Receipt Date: 20100219
  Transmission Date: 20100710
  Serious: No
  Sender: FDA-Public Use
  Company Number: US-B.I. PHARMACEUTICALS,INC./RIDGEFIELD-2010-BP-02194BP

PATIENT

DRUGS (2)
  1. VIRAMUNE [Suspect]
     Indication: HIV INFECTION
     Dosage: 200 MG
     Dates: start: 20020101
  2. VIRAMUNE [Suspect]
     Dosage: 400 MG

REACTIONS (2)
  - DRUG INTOLERANCE [None]
  - DRUG LEVEL DECREASED [None]
